FAERS Safety Report 8768105 (Version 1)
Quarter: 2012Q4

REPORT INFORMATION
  Report Type: 
  Country: US (occurrence: US)
  Receive Date: 20120905
  Receipt Date: 20120905
  Transmission Date: 20130627
  Serious: Yes (Hospitalization)
  Sender: FDA-Public Use
  Company Number: US-GLAXOSMITHKLINE-A0761197A

PATIENT
  Age: 78 Year
  Sex: Female
  Weight: 65 kg

DRUGS (9)
  1. AVANDIA [Suspect]
     Indication: TYPE 2 DIABETES MELLITUS
     Dosage: 8MG Per day
     Route: 048
     Dates: start: 1999, end: 2007
  2. STARLIX [Concomitant]
  3. GLUCOTROL XL [Concomitant]
  4. CELEBREX [Concomitant]
  5. VIOXX [Concomitant]
  6. ALPRAZOLAM [Concomitant]
  7. ELAVIL [Concomitant]
  8. OMEPRAZOLE [Concomitant]
  9. FLURAZEPAM [Concomitant]

REACTIONS (2)
  - Cardiac failure congestive [Not Recovered/Not Resolved]
  - Coronary artery disease [Unknown]
